FAERS Safety Report 25775509 (Version 4)
Quarter: 2025Q4

REPORT INFORMATION
  Report Type: Report from Study
  Country: EU (occurrence: EU)
  Receive Date: 20250909
  Receipt Date: 20251013
  Transmission Date: 20260118
  Serious: Yes (Hospitalization, Other)
  Sender: ABBVIE
  Company Number: EU-ABBVIE-6425779

PATIENT
  Age: 77 Year
  Sex: Male
  Weight: 62.5 kg

DRUGS (30)
  1. CARBIDOPA\LEVODOPA [Suspect]
     Active Substance: CARBIDOPA\LEVODOPA
     Indication: Parkinson^s disease
     Route: 050
     Dates: start: 20171201
  2. CARBIDOPA\LEVODOPA [Suspect]
     Active Substance: CARBIDOPA\LEVODOPA
     Route: 050
     Dates: start: 20171201
  3. BENSERAZIDE HYDROCHLORIDE\LEVODOPA [Concomitant]
     Active Substance: BENSERAZIDE HYDROCHLORIDE\LEVODOPA
     Indication: Parkinson^s disease
  4. POLYETHYLENE GLYCOLS [Concomitant]
     Active Substance: POLYETHYLENE GLYCOLS
     Indication: Product used for unknown indication
     Dosage: ONCE A DAY 1 PIECE?SALTS POWDER FOR DRINK (MOVICOLON/MOLAXOLE/ GENERIC LEMON
     Route: 048
     Dates: start: 20250820
  5. SYMMETREL [Concomitant]
     Active Substance: AMANTADINE HYDROCHLORIDE
     Indication: Parkinson^s disease
  6. MOVICOLON [Concomitant]
     Active Substance: POLYETHYLENE GLYCOL 3350\POTASSIUM CHLORIDE\SODIUM BICARBONATE\SODIUM CHLORIDE
     Indication: Product used for unknown indication
  7. CYANOCOBALAMIN [Concomitant]
     Active Substance: CYANOCOBALAMIN
     Indication: Product used for unknown indication
     Dosage: IF NECESSARY ONCE A DAY 1 PIECE?8:00AM
     Route: 048
     Dates: start: 20250820
  8. FUROSEMIDE [Concomitant]
     Active Substance: FUROSEMIDE
     Indication: Product used for unknown indication
     Dosage: TWICE A DAY 1 PIECE IN STEAD OF 1 DAILY 40MG?8:00AM ?6:00PM
     Route: 048
     Dates: start: 20250820
  9. SPIRONOLACTONE [Concomitant]
     Active Substance: SPIRONOLACTONE
     Indication: Product used for unknown indication
     Dosage: ONCE A DAY 1 PIECE
     Route: 048
     Dates: start: 20250820
  10. METOPROLOL [Concomitant]
     Active Substance: METOPROLOL
     Indication: Product used for unknown indication
     Dosage: TWICE A DAY 0,5 PIECE
     Route: 048
     Dates: start: 20250820
  11. IRBESARTAN [Concomitant]
     Active Substance: IRBESARTAN
     Indication: Product used for unknown indication
     Dosage: ONCE A DAY 1 PIECE?8:00AM
     Route: 048
     Dates: start: 20250820
  12. ATORVASTATIN [Concomitant]
     Active Substance: ATORVASTATIN
     Indication: Product used for unknown indication
     Dosage: ONCE A DAY 1 PIECE
     Route: 048
     Dates: start: 20250820
  13. MICONAZOLE NITRATE [Concomitant]
     Active Substance: MICONAZOLE NITRATE
     Indication: Product used for unknown indication
     Dosage: DOSAGE: 20 MG/G TWICE A DAY 1 DOSE THIN AROUND INSERT?CREAM
     Route: 058
     Dates: start: 20250820
  14. ZINC OXIDE [Concomitant]
     Active Substance: ZINC OXIDE
     Indication: Product used for unknown indication
     Dosage: DOSAGE: 600 MG/G TWICE A DAY 1 DOSE THIN AROUND INSERT?PASTE
     Route: 058
     Dates: start: 20250820
  15. COSMETICS [Concomitant]
     Active Substance: COSMETICS
     Indication: Product used for unknown indication
     Dosage: ONCE A DAY ACCORDING TO AGREEMENT. AT NIGHT AFTER WASHING. APPLY VERY THIN
     Route: 058
     Dates: start: 20250820
  16. PANTOPRAZOLE [Concomitant]
     Active Substance: PANTOPRAZOLE
     Indication: Product used for unknown indication
     Dosage: TWICE A DAY 1 PIECE?8:00AM ?6:00PM
     Route: 048
     Dates: end: 20250820
  17. DAPAGLIFLOZIN [Concomitant]
     Active Substance: DAPAGLIFLOZIN
     Indication: Product used for unknown indication
     Dosage: ONCE A DAY 1 PIECE
     Route: 048
     Dates: start: 20250820
  18. PYRIDOXINE [Concomitant]
     Active Substance: PYRIDOXINE
     Indication: Product used for unknown indication
     Route: 048
     Dates: start: 20250820
  19. CALCIUM CARBONATE [Concomitant]
     Active Substance: CALCIUM CARBONATE
     Indication: Product used for unknown indication
     Dosage: 1.25G/800IU (500 MG CALCIUM)?ONCE A DAY 1 PIECE?COLECALCIFEROL CHEWABLE TABLET ?1.25G/800IU (500M...
     Route: 048
     Dates: start: 20250820
  20. MAGNESIUM [Concomitant]
     Active Substance: MAGNESIUM
     Indication: Product used for unknown indication
     Dosage: ONCE A DAY 1 PIECE, 9:00PM?SELF-CARE
     Route: 048
     Dates: start: 20250820
  21. EDOXABAN [Concomitant]
     Active Substance: EDOXABAN
     Indication: Product used for unknown indication
     Dosage: ONCE A DAY 1 PIECE, PER ORDER OF CARDIOLOGIST ?WHEN OFF
     Route: 048
     Dates: start: 20250820
  22. NAPROXEN [Concomitant]
     Active Substance: NAPROXEN
     Indication: Product used for unknown indication
     Dosage: TWICE A DAY 1 PIECE?TABLET 250 MG
     Route: 048
     Dates: start: 20250820
  23. ACETAMINOPHEN [Concomitant]
     Active Substance: ACETAMINOPHEN
     Indication: Product used for unknown indication
     Dosage: TABLET?TWICE A DAY 2 PIECES
     Route: 048
     Dates: start: 20250820
  24. CLONAZEPAM [Concomitant]
     Active Substance: CLONAZEPAM
     Indication: Product used for unknown indication
     Dosage: ONCE A DAY 1 PIECE?TABLET
     Route: 048
     Dates: start: 20250820
  25. AMANTADINE [Concomitant]
     Active Substance: AMANTADINE
     Indication: Product used for unknown indication
     Dosage: CAPSULE?ONCE A DAY 1 PIECE
     Route: 048
     Dates: start: 20250820
  26. POVIDONE [Concomitant]
     Active Substance: POVIDONE
     Indication: Product used for unknown indication
     Dosage: DOSAGE: 20 MG/ML THREE TIMES A DAY 1 DROP IN BOTH EYES?ROUTE- EYE?OPHTHALMIC?EYE DROPS 20MG/ML MI...
     Route: 065
     Dates: start: 20250820
  27. LEVODOPA [Concomitant]
     Active Substance: LEVODOPA
     Indication: Product used for unknown indication
     Dosage: TWICE A DAY (USES 2.5 CASSETTES A DAY)?LEVDOPA/CARBIDOPA GEL GASTRO ENT 20/5MG/ML 100ML?GASTROENT...
     Route: 065
     Dates: start: 20250820
  28. CITALOPRAM [Concomitant]
     Active Substance: CITALOPRAM
     Indication: Product used for unknown indication
     Dosage: ONCE A DAY 1 PIECE?TABLET ENCASED 20 MG
     Route: 048
     Dates: start: 20250820
  29. Levdopa/benserazide [Concomitant]
     Indication: Product used for unknown indication
     Dosage: IF NECESSARY ACCORDING TO AGREEMENT. EMERGENCY MEDICATION WHEN PUMP STOPS WORKING?LEVDOPA/ BENSER...
     Route: 048
     Dates: start: 20250820
  30. DEXAMETHASONE [Concomitant]
     Active Substance: DEXAMETHASONE
     Indication: Product used for unknown indication
     Dosage: IF NECESSARY THREE TIMES A DAY THREE DROPS IN THE AFFECTED EAR?ROUTE: EYE?TOBRAMYCIN EYE DROPS 1/...
     Dates: start: 20250820

REACTIONS (16)
  - Cardiac failure [Recovering/Resolving]
  - Pleural effusion [Recovering/Resolving]
  - Malaise [Not Recovered/Not Resolved]
  - General physical health deterioration [Recovering/Resolving]
  - Gait disturbance [Recovering/Resolving]
  - Tremor [Not Recovered/Not Resolved]
  - Restlessness [Unknown]
  - Stoma site irritation [Unknown]
  - Stoma site erythema [Unknown]
  - Stoma site discharge [Unknown]
  - Muscle rigidity [Not Recovered/Not Resolved]
  - Speech disorder [Not Recovered/Not Resolved]
  - Dyskinesia [Not Recovered/Not Resolved]
  - Atrial fibrillation [Recovered/Resolved]
  - Heart rate irregular [Recovering/Resolving]
  - Dyspnoea [Recovering/Resolving]

NARRATIVE: CASE EVENT DATE: 20250801
